FAERS Safety Report 21437927 (Version 1)
Quarter: 2022Q4

REPORT INFORMATION
  Report Type: Spontaneous
  Country: US (occurrence: US)
  Receive Date: 20221011
  Receipt Date: 20221011
  Transmission Date: 20230113
  Serious: No
  Sender: FDA-Public Use
  Company Number: US-ALK-ABELLO A/S-2022AA002735

PATIENT

DRUGS (13)
  1. BETULA NIGRA POLLEN [Suspect]
     Active Substance: BETULA NIGRA POLLEN
     Indication: Product used for unknown indication
     Dosage: UNK
     Dates: start: 20220208
  2. ACER NEGUNDO POLLEN [Suspect]
     Active Substance: ACER NEGUNDO POLLEN
     Indication: Product used for unknown indication
     Dosage: UNK
     Dates: start: 20220208
  3. JUNIPERUS ASHEI POLLEN [Suspect]
     Active Substance: JUNIPERUS ASHEI POLLEN
     Indication: Product used for unknown indication
     Dosage: UNK
     Dates: start: 20220208
  4. CARYA OVATA POLLEN [Suspect]
     Active Substance: CARYA OVATA POLLEN
     Indication: Product used for unknown indication
     Dosage: UNK
     Dates: start: 20220208
  5. CHENOPODIUM ALBUM POLLEN [Suspect]
     Active Substance: CHENOPODIUM ALBUM POLLEN
     Indication: Product used for unknown indication
     Dosage: UNK
     Dates: start: 20220208
  6. CYNODON DACTYLON POLLEN [Suspect]
     Active Substance: CYNODON DACTYLON POLLEN
     Indication: Product used for unknown indication
     Dosage: UNK
     Dates: start: 20220208
  7. QUERCUS ALBA POLLEN [Suspect]
     Active Substance: QUERCUS ALBA POLLEN
     Indication: Product used for unknown indication
     Dosage: UNK
     Dates: start: 20220208
  8. AMARANTHUS RETROFLEXUS POLLEN [Suspect]
     Active Substance: AMARANTHUS RETROFLEXUS POLLEN
     Indication: Product used for unknown indication
     Dosage: UNK
     Dates: start: 20220208
  9. AMBROSIA ARTEMISIIFOLIA POLLEN [Suspect]
     Active Substance: AMBROSIA ARTEMISIIFOLIA POLLEN
     Indication: Product used for unknown indication
     Dosage: UNK
     Dates: start: 20220208
  10. PHLEUM PRATENSE POLLEN [Suspect]
     Active Substance: PHLEUM PRATENSE POLLEN
     Indication: Product used for unknown indication
     Dosage: UNK
     Dates: start: 20220208
  11. DERMATOPHAGOIDES PTERONYSSINUS [Suspect]
     Active Substance: DERMATOPHAGOIDES PTERONYSSINUS
     Indication: Product used for unknown indication
     Dosage: UNK
     Dates: start: 20220208
  12. ZYRTEC [Concomitant]
     Active Substance: CETIRIZINE HYDROCHLORIDE
     Dosage: UNK
  13. MOMETASONE FUROATE [Concomitant]
     Active Substance: MOMETASONE FUROATE
     Dosage: UNK

REACTIONS (1)
  - Dyspnoea [Recovered/Resolved]
